FAERS Safety Report 5242747-3 (Version None)
Quarter: 2007Q1

REPORT INFORMATION
  Report Type: 
  Country: None (occurrence: None)
  Receive Date: 20061201
  Receipt Date: 20060805
  Transmission Date: 20070707
  Serious: No
  Sender: FDA-Public Use
  Company Number: 2006PV012447

PATIENT
  Age: 50 Year
  Sex: Male
  Weight: 80.2867 kg

DRUGS (8)
  1. BYETTA [Suspect]
     Indication: DIABETES MELLITUS NON-INSULIN-DEPENDENT
     Dosage: SEE IMAGE
     Route: 059
     Dates: start: 20060301, end: 20060401
  2. BYETTA [Suspect]
     Indication: DIABETES MELLITUS NON-INSULIN-DEPENDENT
     Dosage: SEE IMAGE
     Route: 059
     Dates: start: 20060401, end: 20060601
  3. BYETTA [Suspect]
     Indication: DIABETES MELLITUS NON-INSULIN-DEPENDENT
     Dosage: SEE IMAGE
     Route: 059
     Dates: start: 20060601, end: 20060701
  4. BYETTA [Suspect]
     Indication: DIABETES MELLITUS NON-INSULIN-DEPENDENT
     Dosage: SEE IMAGE
     Route: 059
     Dates: start: 20060701
  5. LANTUS [Concomitant]
  6. GLUCOPHAGE [Concomitant]
  7. HIGH CHOLESTEROL MEDICATION [Concomitant]
  8. HIGH BLOOD PRESSURE MEDICATION [Concomitant]

REACTIONS (10)
  - ABDOMINAL DISTENSION [None]
  - CONDITION AGGRAVATED [None]
  - DECREASED APPETITE [None]
  - NASOPHARYNGITIS [None]
  - NAUSEA [None]
  - PAROSMIA [None]
  - RHINORRHOEA [None]
  - SINUS CONGESTION [None]
  - SNEEZING [None]
  - WEIGHT DECREASED [None]
